FAERS Safety Report 11630170 (Version 1)
Quarter: 2015Q4

REPORT INFORMATION
  Report Type: Spontaneous
  Country: US (occurrence: US)
  Receive Date: 20151014
  Receipt Date: 20151014
  Transmission Date: 20160304
  Serious: No
  Sender: FDA-Public Use
  Company Number: US-INDIVIOR-RB-079696-2015

PATIENT
  Age: 21 Year
  Sex: Male

DRUGS (4)
  1. UNSPECIFIED PAIN PILLS [Suspect]
     Active Substance: UNSPECIFIED INGREDIENT
     Indication: PRODUCT USED FOR UNKNOWN INDICATION
     Dosage: UNK
     Route: 065
     Dates: start: 201505, end: 20150515
  2. SUBOXONE [Suspect]
     Active Substance: BUPRENORPHINE HYDROCHLORIDE\NALOXONE HYDROCHLORIDE
     Dosage: 2 MG, QD FOR ABOUT 2 - 3 WEEKS
     Route: 060
     Dates: start: 201505, end: 201505
  3. SUBOXONE [Suspect]
     Active Substance: BUPRENORPHINE HYDROCHLORIDE\NALOXONE HYDROCHLORIDE
     Dosage: 2 MG, QD
     Route: 060
     Dates: start: 20150515
  4. SUBOXONE [Suspect]
     Active Substance: BUPRENORPHINE HYDROCHLORIDE\NALOXONE HYDROCHLORIDE
     Indication: DRUG DEPENDENCE
     Dosage: 8 MG, QD FOR ABOUT A WEEK
     Route: 060
     Dates: start: 201504, end: 201505

REACTIONS (7)
  - Therapy cessation [Recovered/Resolved]
  - Somnolence [Not Recovered/Not Resolved]
  - Product preparation error [Not Recovered/Not Resolved]
  - Fatigue [Not Recovered/Not Resolved]
  - Drug dependence [Recovered/Resolved]
  - Dark circles under eyes [Not Recovered/Not Resolved]
  - Disturbance in attention [Not Recovered/Not Resolved]

NARRATIVE: CASE EVENT DATE: 201504
